FAERS Safety Report 20643754 (Version 1)
Quarter: 2022Q1

REPORT INFORMATION
  Report Type: Spontaneous
  Country: CN (occurrence: None)
  Receive Date: 20220328
  Receipt Date: 20220328
  Transmission Date: 20220423
  Serious: Yes (Hospitalization)
  Sender: FDA-Public Use
  Company Number: CN-Unichem Pharmaceuticals (USA) Inc-UCM202203-000308

PATIENT

DRUGS (1)
  1. QUETIAPINE [Suspect]
     Active Substance: QUETIAPINE
     Indication: Overdose
     Dosage: UNKNOWN

REACTIONS (5)
  - Acute respiratory distress syndrome [Recovering/Resolving]
  - Toxicity to various agents [Unknown]
  - Coma [Recovering/Resolving]
  - Hypotension [Recovering/Resolving]
  - Overdose [Unknown]
